FAERS Safety Report 6672869-1 (Version None)
Quarter: 2010Q2

REPORT INFORMATION
  Report Type: 
  Country: None (occurrence: None)
  Receive Date: 20100408
  Receipt Date: 20100329
  Transmission Date: 20101027
  Serious: Yes (Other)
  Sender: FDA-Public Use
  Company Number: PHHY2010JP18310

PATIENT
  Age: 81 Year
  Sex: Male

DRUGS (10)
  1. DIOVAN [Suspect]
     Indication: HYPERTENSION
     Dosage: 80 MG, QD
     Route: 048
  2. ALDACTONE [Concomitant]
     Dosage: 25 MG, UNK
     Route: 048
  3. AMLODIPINE [Concomitant]
     Dosage: 5 MG, UNK
     Route: 048
  4. FOSMICIN [Concomitant]
     Dosage: UNK
  5. CYTOTEC [Concomitant]
     Dosage: 200 MG, UNK
  6. ASPIRIN [Concomitant]
     Dosage: UNK
  7. ANGINAL [Concomitant]
     Dosage: 25 MG, UNK
  8. DEPAS [Concomitant]
     Dosage: 0.5 MG, UNK
  9. PATANOL [Concomitant]
     Dosage: 5 MG, UNK
     Route: 047
  10. NITROGLYCERIN [Concomitant]
     Dosage: UNK
     Route: 062

REACTIONS (1)
  - BLOOD CREATINE PHOSPHOKINASE INCREASED [None]
